FAERS Safety Report 14352351 (Version 12)
Quarter: 2020Q3

REPORT INFORMATION
  Report Type: Spontaneous
  Country: BE (occurrence: BE)
  Receive Date: 20180104
  Receipt Date: 20200710
  Transmission Date: 20201102
  Serious: Yes (Other)
  Sender: FDA-Public Use
  Company Number: BE-IPSEN BIOPHARMACEUTICALS, INC.-2018-00074

PATIENT
  Age: 76 Year
  Sex: Male
  Weight: 85.3 kg

DRUGS (20)
  1. MEDROL [Concomitant]
     Active Substance: METHYLPREDNISOLONE
     Indication: PRODUCT USED FOR UNKNOWN INDICATION
     Dosage: UNKNOWN
     Route: 065
  2. 5?FLUOROURACIL [Suspect]
     Active Substance: FLUOROURACIL
     Indication: COLORECTAL CANCER METASTATIC
     Dosage: 1 DF, EVERY 2 WEEKS
     Route: 042
     Dates: start: 20161213
  3. LEUCOVORIN. [Suspect]
     Active Substance: LEUCOVORIN
     Dosage: 1 UNK, EVERY 2 WEEK
     Route: 042
     Dates: start: 20170613
  4. BISOPROLOL FUMARATE. [Concomitant]
     Active Substance: BISOPROLOL FUMARATE
     Indication: PROPHYLAXIS
     Route: 042
     Dates: end: 20170613
  5. PANTOMED [Concomitant]
     Indication: PROPHYLAXIS
     Dosage: 40 MG
     Route: 048
  6. ALDACTONE [Concomitant]
     Active Substance: SPIRONOLACTONE
     Indication: PRODUCT USED FOR UNKNOWN INDICATION
     Dosage: 80 MG
     Route: 048
  7. DEANXIT [Concomitant]
     Active Substance: FLUPENTIXOL DIHYDROCHLORIDE\MELITRACEN HYDROCHLORIDE
     Indication: PROPHYLAXIS
     Dosage: 10 MG
     Route: 048
  8. ONIVYDE [Suspect]
     Active Substance: IRINOTECAN HYDROCHLORIDE
     Indication: OFF LABEL USE
     Dosage: 1 UNK, EVERY WEEK, 2 OT QW (2X WEEK)
     Route: 042
     Dates: start: 20161213
  9. VORINA [Concomitant]
     Dates: start: 20161213, end: 20170613
  10. AVASTIN [Suspect]
     Active Substance: BEVACIZUMAB
     Indication: COLORECTAL CANCER METASTATIC
     Dosage: 2 DF, 2X A WEEK, 2 OT, QW (2X A WEEK)
     Route: 042
     Dates: start: 20161213
  11. AACIDEXAM [Concomitant]
     Active Substance: DEXAMETHASONE
     Indication: PROPHYLAXIS
     Route: 042
     Dates: start: 20161213, end: 20170613
  12. ELIQUIS [Concomitant]
     Active Substance: APIXABAN
     Indication: PROPHYLAXIS
     Dosage: 2.5 MG, QD
     Route: 048
  13. LEUCOVORIN. [Suspect]
     Active Substance: LEUCOVORIN
     Indication: COLORECTAL CANCER METASTATIC
     Dosage: 1 DF, EVERY 2 WEEKS, 2 OT, QW (1 2 WEEK UNK) DATE OF RECENT DOSE: 13?JUN?2017; INTRAVENOUS
     Route: 042
     Dates: start: 20161213
  14. ATROPINE. [Concomitant]
     Active Substance: ATROPINE
     Dates: start: 20161213, end: 20170613
  15. DEXPANTHENOL. [Concomitant]
     Active Substance: DEXPANTHENOL
  16. ONIVYDE [Suspect]
     Active Substance: IRINOTECAN HYDROCHLORIDE
     Indication: COLORECTAL CANCER METASTATIC
     Dosage: 1 UNK, EVERY 2 WEEKS
     Route: 042
     Dates: start: 20161213, end: 20170613
  17. 5?FLUOROURACIL [Suspect]
     Active Substance: FLUOROURACIL
     Dosage: 1 DF, EVERY 1 WEEK, 2 OT, QW (1 2 WEEK UNK)
     Route: 042
     Dates: start: 20170613
  18. ALOXI [Concomitant]
     Active Substance: PALONOSETRON HYDROCHLORIDE
     Indication: PROPHYLAXIS
     Route: 042
     Dates: start: 20161213, end: 20170613
  19. BURINEX [Concomitant]
     Active Substance: BUMETANIDE
     Indication: PRODUCT USED FOR UNKNOWN INDICATION
     Route: 048
  20. CRESTOR [Concomitant]
     Active Substance: ROSUVASTATIN CALCIUM
     Indication: PRODUCT USED FOR UNKNOWN INDICATION
     Dosage: 10 MG, QD
     Route: 048

REACTIONS (12)
  - Orthostatic hypotension [Not Recovered/Not Resolved]
  - Blood creatinine decreased [Recovered/Resolved]
  - Inappropriate schedule of product administration [Unknown]
  - Epistaxis [Recovered/Resolved]
  - Dysphonia [Not Recovered/Not Resolved]
  - Off label use [Unknown]
  - Neutropenia [Recovered/Resolved]
  - Dyspnoea [Not Recovered/Not Resolved]
  - Decreased appetite [Not Recovered/Not Resolved]
  - C-reactive protein increased [Not Recovered/Not Resolved]
  - General physical health deterioration [Not Recovered/Not Resolved]
  - Diarrhoea [Not Recovered/Not Resolved]

NARRATIVE: CASE EVENT DATE: 20161213
